FAERS Safety Report 10878516 (Version 1)
Quarter: 2015Q1

REPORT INFORMATION
  Report Type: Spontaneous
  Country: US (occurrence: US)
  Receive Date: 20150302
  Receipt Date: 20150302
  Transmission Date: 20150721
  Serious: No
  Sender: FDA-Public Use
  Company Number: US-ABBVIE-14K-163-1236831-00

PATIENT
  Sex: Female

DRUGS (1)
  1. ANDROGEL [Suspect]
     Active Substance: TESTOSTERONE
     Indication: EXPOSURE VIA DIRECT CONTACT
     Route: 062

REACTIONS (3)
  - Accidental exposure to product [Unknown]
  - Blood testosterone increased [Unknown]
  - Enlarged clitoris [Unknown]
